FAERS Safety Report 7635765-9 (Version None)
Quarter: 2011Q3

REPORT INFORMATION
  Report Type: 
  Country: None (occurrence: None)
  Receive Date: 20110726
  Receipt Date: 20110722
  Transmission Date: 20111222
  Serious: Yes (Other)
  Sender: FDA-Public Use
  Company Number: US-PFIZER INC-2011167410

PATIENT
  Sex: Female
  Weight: 96.145 kg

DRUGS (4)
  1. ZOLOFT [Suspect]
     Indication: ANXIETY
     Dosage: 50 MG, DAILY
     Route: 048
     Dates: end: 20110701
  2. ZYVOX [Suspect]
     Indication: HICCUPS
     Dosage: EITHER 500MG OR 600MG TWO TIMES A DAY
     Dates: start: 20110701
  3. LEVOXYL [Concomitant]
     Indication: HYPOTHYROIDISM
     Dosage: 0.07 MG, DAILY
  4. ZOLOFT [Suspect]
     Indication: DEPRESSION

REACTIONS (7)
  - NAUSEA [None]
  - WHITE BLOOD CELL COUNT DECREASED [None]
  - DEPRESSION [None]
  - FATIGUE [None]
  - BLOOD CALCIUM INCREASED [None]
  - ASTHENIA [None]
  - BLOOD CREATININE INCREASED [None]
